FAERS Safety Report 9882479 (Version 2)
Quarter: 2014Q1

REPORT INFORMATION
  Report Type: Report from Study
  Country: JP (occurrence: JP)
  Receive Date: 20140207
  Receipt Date: 20140220
  Transmission Date: 20141002
  Serious: Yes (Death)
  Sender: FDA-Public Use
  Company Number: JP-PFIZER INC-2014032457

PATIENT
  Age: 61 Year
  Sex: Female
  Weight: 48 kg

DRUGS (28)
  1. XALKORI [Suspect]
     Indication: NON-SMALL CELL LUNG CANCER
     Dosage: 250 MG, 2X/DAY
     Route: 048
     Dates: start: 20130419, end: 20130510
  2. BROTIZOLAM OD [Concomitant]
     Dosage: 0.25 MG, 1X/DAY
     Route: 048
     Dates: end: 20130510
  3. LANSOPRAZOLE [Concomitant]
     Dosage: 15 MG, 1X/DAY
     Route: 048
     Dates: start: 20130420, end: 20130510
  4. ZYPREXA [Concomitant]
     Dosage: 5 MG, 1X/DAY
     Route: 048
     Dates: start: 20130422, end: 20130510
  5. DAIPHEN [Concomitant]
     Dosage: 1 G, 1X/DAY
     Route: 048
     Dates: start: 20130426, end: 20130510
  6. MILMAG [Concomitant]
     Dosage: 30 ML, 3X/DAY
     Route: 048
     Dates: end: 20130428
  7. MILMAG [Concomitant]
     Dosage: 30 ML, 3X/DAY
     Route: 048
     Dates: start: 20130430, end: 20130510
  8. ALLOID G [Concomitant]
     Dosage: 60 ML, 3X/DAY
     Route: 048
     Dates: start: 20130430, end: 20130508
  9. LINOLOSAL [Concomitant]
     Dosage: 2 MG, 1X/DAY
     Dates: end: 20130507
  10. LINOLOSAL [Concomitant]
     Dosage: 2 MG, 2X/DAY
     Dates: start: 20130508
  11. LINOLOSAL [Concomitant]
     Dosage: 4 MG, 1X/DAY
     Dates: start: 20130509
  12. PANTHENYL [Concomitant]
     Dosage: 1000 MG, 1X/DAY
     Dates: end: 20130510
  13. PRIMPERAN [Concomitant]
     Dosage: 20 MG, 1X/DAY
     Dates: start: 20130420, end: 20130510
  14. FENTANYL [Concomitant]
     Dosage: 10 ML, 1X/DAY
     Dates: start: 20130420
  15. FENTANYL [Concomitant]
     Dosage: 10 ML, 1X/DAY
     Dates: start: 20130422, end: 20130501
  16. FENTANYL [Concomitant]
     Dosage: 10 ML, 1X/DAY
     Dates: start: 20130503, end: 20130508
  17. ZOMETA [Concomitant]
     Dosage: 4 MG, 1X/DAY
     Route: 041
     Dates: start: 20130501
  18. SULTAMUGIN [Concomitant]
     Dosage: 2 G, 1X/DAY
     Dates: start: 20130510
  19. SALIPARA CODEINE [Concomitant]
     Dosage: 6 ML, 3X/DAY
     Route: 048
     Dates: start: 20130501, end: 20130510
  20. PRIMPERAN [Concomitant]
     Dosage: 5 MG, 3X/DAY
     Route: 048
     Dates: end: 20130419
  21. PRIMPERAN [Concomitant]
     Dosage: 5 MG, AS NEEDED
     Route: 048
     Dates: start: 20130420, end: 20130421
  22. PRIMPERAN [Concomitant]
     Dosage: 5 MG, AS NEEDED
     Route: 048
     Dates: start: 20130423
  23. PRIMPERAN [Concomitant]
     Dosage: 5 MG, AS NEEDED
     Route: 048
     Dates: start: 20130425, end: 20130430
  24. PRIMPERAN [Concomitant]
     Dosage: 5 MG, AS NEEDED
     Route: 048
     Dates: start: 20130502
  25. ETIZOLAM [Concomitant]
     Dosage: 0.5 MG, AS NEEDED
     Route: 048
     Dates: start: 20130421
  26. ETIZOLAM [Concomitant]
     Dosage: 0.5 MG, AS NEEDED
     Route: 048
     Dates: start: 20130423, end: 20130425
  27. ETIZOLAM [Concomitant]
     Dosage: 0.5 MG, AS NEEDED
     Route: 048
     Dates: start: 20130503
  28. OPSO [Concomitant]
     Dosage: 10 MG, AS NEEDED
     Route: 048
     Dates: start: 20130510

REACTIONS (2)
  - Disease progression [Fatal]
  - Non-small cell lung cancer [Fatal]
